FAERS Safety Report 9176944 (Version 1)
Quarter: 2013Q1

REPORT INFORMATION
  Report Type: Spontaneous
  Country: US (occurrence: None)
  Receive Date: 20130320
  Receipt Date: 20130320
  Transmission Date: 20140127
  Serious: Yes (Other)
  Sender: FDA-Public Use
  Company Number: None

PATIENT
  Age: 66 Year
  Sex: Female

DRUGS (1)
  1. STIVARGA [Suspect]
     Indication: NEOPLASM MALIGNANT
     Dates: start: 20121116, end: 20130304

REACTIONS (3)
  - Fatigue [None]
  - Weight decreased [None]
  - Decreased appetite [None]
